FAERS Safety Report 7399450-3 (Version None)
Quarter: 2011Q2

REPORT INFORMATION
  Report Type: 
  Country: None (occurrence: None)
  Receive Date: 20110407
  Receipt Date: 20110325
  Transmission Date: 20111010
  Serious: Yes (Other)
  Sender: FDA-Public Use
  Company Number: PHFR2011GB02027

PATIENT
  Sex: Male

DRUGS (1)
  1. GLEEVEC [Suspect]
     Indication: MYELOID LEUKAEMIA

REACTIONS (5)
  - MUSCLE SPASMS [None]
  - WEIGHT INCREASED [None]
  - ERECTILE DYSFUNCTION [None]
  - CROHN'S DISEASE [None]
  - LOSS OF LIBIDO [None]
